FAERS Safety Report 6368757-0 (Version None)
Quarter: 2009Q3

REPORT INFORMATION
  Report Type: 
  Country: None (occurrence: None)
  Receive Date: 20090922
  Receipt Date: 20090908
  Transmission Date: 20100115
  Serious: Yes (Life-Threatening)
  Sender: FDA-Public Use
  Company Number: NL-MERCK-0909NLD00012

PATIENT
  Age: 76 Year
  Sex: Male
  Weight: 90 kg

DRUGS (5)
  1. ZOCOR [Suspect]
     Indication: CORONARY ARTERY BYPASS
     Route: 048
     Dates: start: 20010918
  2. METOPROLOL SUCCINATE [Concomitant]
     Route: 048
     Dates: start: 20081216
  3. CARBASPIRIN CALCIUM [Concomitant]
     Route: 048
     Dates: start: 20010101
  4. AMLODIPINE [Concomitant]
     Route: 048
     Dates: start: 20070707
  5. ISOSORBIDE MONONITRATE [Concomitant]
     Route: 048
     Dates: start: 20081216

REACTIONS (2)
  - ANGINA PECTORIS [None]
  - DRUG WITHDRAWAL SYNDROME [None]
